FAERS Safety Report 8386904-6 (Version None)
Quarter: 2012Q2

REPORT INFORMATION
  Report Type: 
  Country: None (occurrence: None)
  Receive Date: 20120525
  Receipt Date: 20120514
  Transmission Date: 20120825
  Serious: Yes (Hospitalization)
  Sender: FDA-Public Use
  Company Number: ES-JNJFOC-20120514775

PATIENT
  Age: 77 Year
  Sex: Female

DRUGS (1)
  1. DURAGESIC-100 [Suspect]
     Indication: RHEUMATOID ARTHRITIS
     Route: 062
     Dates: start: 20110801, end: 20110902

REACTIONS (3)
  - HYPONATRAEMIA [None]
  - CONFUSIONAL STATE [None]
  - VOMITING [None]
